FAERS Safety Report 14781272 (Version 1)
Quarter: 2018Q2

REPORT INFORMATION
  Report Type: Spontaneous
  Country: US (occurrence: US)
  Receive Date: 20180419
  Receipt Date: 20180419
  Transmission Date: 20180711
  Serious: No
  Sender: FDA-Public Use
  Company Number: US-BIOGEN-2018BI00515397

PATIENT
  Age: 64 Year
  Sex: Male

DRUGS (2)
  1. ZINBRYTA [Suspect]
     Active Substance: DACLIZUMAB
     Indication: MULTIPLE SCLEROSIS
     Route: 058
     Dates: start: 20170526
  2. ZINBRYTA [Suspect]
     Active Substance: DACLIZUMAB
     Route: 065
     Dates: start: 20170804

REACTIONS (2)
  - Colitis [Not Recovered/Not Resolved]
  - Immune-mediated adverse reaction [Unknown]

NARRATIVE: CASE EVENT DATE: 201711
